FAERS Safety Report 8923519 (Version 1)
Quarter: 2012Q4

REPORT INFORMATION
  Report Type: 
  Country: IE (occurrence: IE)
  Receive Date: 20121123
  Receipt Date: 20121123
  Transmission Date: 20130627
  Serious: Yes (Other)
  Sender: FDA-Public Use
  Company Number: IE-PFIZER INC-2012290578

PATIENT
  Sex: Male

DRUGS (1)
  1. SUTENT [Suspect]
     Indication: METASTATIC RENAL CARCINOMA
     Dosage: 37.5 mg, 1x/day, 4 weeks on 2 weeks off

REACTIONS (4)
  - Haemorrhoidal haemorrhage [Unknown]
  - Fatigue [Unknown]
  - Excoriation [Recovering/Resolving]
  - Dyspnoea [Unknown]
